FAERS Safety Report 4380363-6 (Version None)
Quarter: 2004Q2

REPORT INFORMATION
  Report Type: 
  Country: None (occurrence: None)
  Receive Date: 20040618
  Receipt Date: 20040520
  Transmission Date: 20050107
  Serious: Yes (Life-Threatening, Hospitalization)
  Sender: FDA-Public Use
  Company Number: 200415316GDDC

PATIENT
  Age: 48 Year
  Sex: Female

DRUGS (5)
  1. LASIX [Suspect]
     Route: 048
     Dates: start: 20030601
  2. ENBREL [Suspect]
     Indication: JUVENILE ARTHRITIS
     Route: 058
     Dates: start: 20031001, end: 20031201
  3. PREDNISONE [Suspect]
     Route: 048
     Dates: start: 20030601
  4. CELECOXIB [Suspect]
     Route: 048
     Dates: start: 20030601
  5. CALCITONIN-SALMON [Concomitant]
     Dosage: DOSE: UNK

REACTIONS (6)
  - ARRHYTHMIA [None]
  - DIALYSIS [None]
  - LOBAR PNEUMONIA [None]
  - LOWER RESPIRATORY TRACT INFECTION [None]
  - RENAL FAILURE ACUTE [None]
  - SEPSIS [None]
